FAERS Safety Report 8154552-9 (Version None)
Quarter: 2012Q1

REPORT INFORMATION
  Report Type: 
  Country: None (occurrence: None)
  Receive Date: 20120221
  Receipt Date: 20120210
  Transmission Date: 20120608
  Serious: Yes (Other)
  Sender: FDA-Public Use
  Company Number: US-ELI_LILLY_AND_COMPANY-US201202004252

PATIENT
  Age: 80 Year
  Sex: Female

DRUGS (2)
  1. RIFAXIMIN [Concomitant]
     Dosage: UNK
     Dates: start: 20111201, end: 20111201
  2. FORTEO [Suspect]
     Indication: OSTEOPOROSIS
     Dosage: 20 UG, UNK
     Route: 058
     Dates: start: 20110301, end: 20120101

REACTIONS (4)
  - MYASTHENIA GRAVIS [None]
  - WHITE BLOOD CELL COUNT DECREASED [None]
  - BASEDOW'S DISEASE [None]
  - NEUTROPHIL COUNT DECREASED [None]
